FAERS Safety Report 11906117 (Version 1)
Quarter: 2016Q1

REPORT INFORMATION
  Report Type: Spontaneous
  Country: US (occurrence: None)
  Receive Date: 20160108
  Receipt Date: 20160108
  Transmission Date: 20160526
  Serious: No
  Sender: FDA-Public Use
  Company Number: None

PATIENT
  Sex: Male
  Weight: 97.52 kg

DRUGS (10)
  1. ALTACE [Concomitant]
     Active Substance: RAMIPRIL
  2. VITAMIN C [Concomitant]
     Active Substance: ASCORBIC ACID
  3. LIPITOR [Concomitant]
     Active Substance: ATORVASTATIN CALCIUM
  4. ANAGRELIDE [Concomitant]
     Active Substance: ANAGRELIDE
  5. ASPIRIN. [Concomitant]
     Active Substance: ASPIRIN
  6. CENTRUM SILVER MULTIVITAMIN [Concomitant]
  7. ANAGRELIDE HCL CAPS (GENERIC FOR AGRYLIN CAPS [Suspect]
     Active Substance: ANAGRELIDE HYDROCHLORIDE
     Indication: PLATELET COUNT INCREASED
     Dosage: 1 PILL 2X DAILY BY MOUTH
     Route: 048
     Dates: start: 2008
  8. METOPROLOL (TOPORAL [Concomitant]
  9. VITAMIN D [Concomitant]
     Active Substance: CHOLECALCIFEROL
  10. GLUCOSAMINE CHONDROITIN [Concomitant]
     Active Substance: CHONDROITIN SULFATE (BOVINE)\GLUCOSAMINE HYDROCHLORIDE

REACTIONS (6)
  - Thinking abnormal [None]
  - Eye irritation [None]
  - Vision blurred [None]
  - Dizziness [None]
  - Balance disorder [None]
  - Lethargy [None]
